FAERS Safety Report 8635642 (Version 2)
Quarter: 2012Q4

REPORT INFORMATION
  Report Type: Report from Study
  Country: JP (occurrence: JP)
  Receive Date: 20120626
  Receipt Date: 20121220
  Transmission Date: 20130627
  Serious: Yes (Death)
  Sender: FDA-Public Use
  Company Number: JP-ROCHE-1080087

PATIENT
  Age: 0 Year
  Sex: Female
  Weight: 59 kg

DRUGS (6)
  1. ALTEPLASE [Suspect]
     Indication: EMBOLIC STROKE
     Route: 040
     Dates: start: 20120116, end: 20120116
  2. EDARAVONE [Suspect]
     Indication: EMBOLIC STROKE
     Route: 041
     Dates: start: 20120116, end: 20120117
  3. EDARAVONE [Suspect]
     Indication: EMBOLIC STROKE
  4. ARGATROBAN [Suspect]
     Indication: EMBOLIC STROKE
     Route: 041
     Dates: start: 20120117, end: 20120117
  5. DILTIAZEM [Concomitant]
     Indication: HYPERTENSION
     Route: 065
     Dates: start: 20120116, end: 20120117
  6. VOLTAREN [Concomitant]
     Indication: PYREXIA
     Dosage: extract
     Route: 065
     Dates: start: 20120116

REACTIONS (1)
  - Cerebral haemorrhage [Fatal]
